FAERS Safety Report 12879890 (Version 1)
Quarter: 2016Q4

REPORT INFORMATION
  Report Type: Spontaneous
  Country: US (occurrence: US)
  Receive Date: 20161025
  Receipt Date: 20161025
  Transmission Date: 20170207
  Serious: No
  Sender: FDA-Public Use
  Company Number: US-PFIZER INC-2016495553

PATIENT
  Age: 55 Year
  Sex: Female

DRUGS (2)
  1. IBUPROFEN. [Suspect]
     Active Substance: IBUPROFEN
     Indication: SWELLING
  2. IBUPROFEN. [Suspect]
     Active Substance: IBUPROFEN
     Indication: FEELING HOT
     Dosage: UNK

REACTIONS (4)
  - Disease recurrence [Unknown]
  - Drug ineffective for unapproved indication [Unknown]
  - Joint swelling [Unknown]
  - Nail disorder [Unknown]
